FAERS Safety Report 9763325 (Version 3)
Quarter: 2013Q4

REPORT INFORMATION
  Report Type: Report from Study
  Country: CA (occurrence: CA)
  Receive Date: 20131216
  Receipt Date: 20131224
  Transmission Date: 20140711
  Serious: Yes (Other)
  Sender: FDA-Public Use
  Company Number: PHHY2013CA088866

PATIENT
  Sex: Female

DRUGS (3)
  1. EXJADE [Suspect]
     Indication: THALASSAEMIA BETA
     Dosage: 1000 MG, DAILY
     Route: 048
     Dates: start: 2011
  2. EXJADE [Suspect]
     Dosage: UNK UKN, UNK
     Route: 048
     Dates: start: 201308
  3. DESFERAL [Concomitant]
     Dosage: UNK UKN, UNK

REACTIONS (1)
  - Coeliac disease [Unknown]
